FAERS Safety Report 13600617 (Version 8)
Quarter: 2019Q3

REPORT INFORMATION
  Report Type: Report from Study
  Country: None (occurrence: NL)
  Receive Date: 20170601
  Receipt Date: 20190722
  Transmission Date: 20191004
  Serious: Yes (Hospitalization)
  Sender: FDA-Public Use
  Company Number: NL-ABBVIE-17K-114-1980606-00

PATIENT
  Age: 56 Year
  Sex: Male
  Weight: 95 kg

DRUGS (12)
  1. DUODOPA [Suspect]
     Active Substance: CARBIDOPA\LEVODOPA
     Dosage: CD 5.0 ML
     Route: 050
     Dates: start: 2017
  2. DUODOPA [Suspect]
     Active Substance: CARBIDOPA\LEVODOPA
     Dosage: CD: 4.8?ED: 2.5ML?MD: 3ML ?NIGHT DOSE: 3.3 EXTRA DOSE: 2.5ML, MORNING DOSE: 13ML.
     Route: 050
     Dates: start: 2017, end: 2017
  3. PARACETAMOL [Concomitant]
     Active Substance: ACETAMINOPHEN
     Indication: PRODUCT USED FOR UNKNOWN INDICATION
     Dosage: CONTINUOUSLY IF NECESSARY
     Route: 048
  4. SIFROL [Concomitant]
     Active Substance: PRAMIPEXOLE
     Indication: PRODUCT USED FOR UNKNOWN INDICATION
  5. CLONAZEPAM. [Concomitant]
     Active Substance: CLONAZEPAM
     Indication: POOR QUALITY SLEEP
  6. DUODOPA [Suspect]
     Active Substance: CARBIDOPA\LEVODOPA
     Dosage: CD NIGHT 1.7 ML, CONTINUOUS DAY PUMP 4.8
     Route: 050
     Dates: start: 2017, end: 2017
  7. MADOPAR DISPER [Concomitant]
     Indication: PARKINSON^S DISEASE
  8. DUODOPA [Suspect]
     Active Substance: CARBIDOPA\LEVODOPA
     Indication: PARKINSON^S DISEASE
     Dosage: MD 16?EDD 2.5?CND 4.4
     Route: 050
     Dates: start: 20160921
  9. DUODOPA [Suspect]
     Active Substance: CARBIDOPA\LEVODOPA
     Route: 050
  10. DUODOPA [Suspect]
     Active Substance: CARBIDOPA\LEVODOPA
     Dosage: MD 16, CD 4.2, ED UNKNOWN
     Route: 050
     Dates: end: 2017
  11. DUODOPA [Suspect]
     Active Substance: CARBIDOPA\LEVODOPA
     Dosage: MD: 13.0, CD: 4.8, ED: 2.5, CND: 2.2
     Route: 050
     Dates: start: 2017, end: 2017
  12. DUODOPA [Suspect]
     Active Substance: CARBIDOPA\LEVODOPA
     Dosage: DAY PUMP: CD 5.4, ED 3, MD 3?NIGHT PUMP: CND 1.7, END 3, MD 15
     Route: 050

REACTIONS (25)
  - Fluid intake reduced [Not Recovered/Not Resolved]
  - Dyskinesia [Not Recovered/Not Resolved]
  - Urinary tract infection [Recovered/Resolved]
  - Gait inability [Not Recovered/Not Resolved]
  - Akathisia [Not Recovered/Not Resolved]
  - Fatigue [Not Recovered/Not Resolved]
  - Inguinal hernia [Not Recovered/Not Resolved]
  - Abnormal dreams [Not Recovered/Not Resolved]
  - Psychomotor hyperactivity [Not Recovered/Not Resolved]
  - Deep brain stimulation [Unknown]
  - Paraesthesia [Not Recovered/Not Resolved]
  - Dyskinesia [Recovered/Resolved]
  - Underdose [Recovered/Resolved]
  - Restlessness [Not Recovered/Not Resolved]
  - Fear [Not Recovered/Not Resolved]
  - Abnormal dreams [Recovered/Resolved]
  - Adverse event [Recovering/Resolving]
  - Neuropathy peripheral [Not Recovered/Not Resolved]
  - Muscle rigidity [Not Recovered/Not Resolved]
  - Insomnia [Recovered/Resolved]
  - Limb discomfort [Not Recovered/Not Resolved]
  - Neuralgia [Not Recovered/Not Resolved]
  - Nightmare [Not Recovered/Not Resolved]
  - Hallucination [Recovered/Resolved]
  - On and off phenomenon [Not Recovered/Not Resolved]

NARRATIVE: CASE EVENT DATE: 20170513
